FAERS Safety Report 17568022 (Version 5)
Quarter: 2020Q3

REPORT INFORMATION
  Report Type: Report from Study
  Country: None (occurrence: US)
  Receive Date: 20200320
  Receipt Date: 20200717
  Transmission Date: 20201102
  Serious: Yes (Other)
  Sender: FDA-Public Use
  Company Number: US-ABBVIE-19K-163-3155180-00

PATIENT
  Age: 78 Year
  Sex: Female

DRUGS (5)
  1. IMBRUVICA [Suspect]
     Active Substance: IBRUTINIB
     Dosage: 140 MG, QD
     Route: 048
     Dates: start: 20180409
  2. IMBRUVICA [Suspect]
     Active Substance: IBRUTINIB
     Indication: CHRONIC LYMPHOCYTIC LEUKAEMIA
     Route: 048
     Dates: start: 20171220
  3. IMBRUVICA [Suspect]
     Active Substance: IBRUTINIB
     Route: 048
     Dates: start: 20171221
  4. IMBRUVICA [Suspect]
     Active Substance: IBRUTINIB
     Route: 048
     Dates: start: 20171219
  5. IMBRUVICA [Suspect]
     Active Substance: IBRUTINIB
     Dosage: 140 MG, TID
     Route: 048

REACTIONS (17)
  - Hypoaesthesia [Not Recovered/Not Resolved]
  - Product use issue [Unknown]
  - Back pain [Unknown]
  - Lumbar radiculopathy [Not Recovered/Not Resolved]
  - Meningioma [Recovered/Resolved]
  - Emotional disorder [Unknown]
  - Transient ischaemic attack [Unknown]
  - Epistaxis [Unknown]
  - Surgery [Unknown]
  - Paraesthesia [Recovered/Resolved]
  - Off label use [Unknown]
  - Blood sodium decreased [Unknown]
  - Gait disturbance [Unknown]
  - Epistaxis [Recovered/Resolved]
  - Nervousness [Not Recovered/Not Resolved]
  - Emergency care [Unknown]
  - Haemorrhage [Recovering/Resolving]

NARRATIVE: CASE EVENT DATE: 20190419
